FAERS Safety Report 10236065 (Version 1)
Quarter: 2014Q2

REPORT INFORMATION
  Report Type: Spontaneous
  Country: GB (occurrence: None)
  Receive Date: 20140611
  Receipt Date: 20140611
  Transmission Date: 20141212
  Serious: Yes (Hospitalization)
  Sender: FDA-Public Use
  Company Number: 2378749

PATIENT
  Age: 62 Year
  Sex: Female

DRUGS (1)
  1. PAMIDRONIC ACID [Suspect]
     Indication: OSTEOPOROSIS
     Dosage: NOT OTHERWISE SPECIFIED
     Route: 042

REACTIONS (3)
  - Fall [None]
  - Femur fracture [None]
  - Osteoarthritis [None]
